FAERS Safety Report 20602714 (Version 13)
Quarter: 2022Q4

REPORT INFORMATION
  Report Type: Report from Study
  Country: DE (occurrence: None)
  Receive Date: 20220316
  Receipt Date: 20221117
  Transmission Date: 20230112
  Serious: Yes (Hospitalization, Other)
  Sender: FDA-Public Use
  Company Number: DE-ROCHE-3041931

PATIENT
  Age: 38 Year
  Sex: Female
  Weight: 45 kg

DRUGS (21)
  1. ATEZOLIZUMAB [Suspect]
     Active Substance: ATEZOLIZUMAB
     Indication: Triple negative breast cancer
     Dosage: RECEIVED CONSECUTIVE DOSES ON 16/DEC/2021, 27/DEC/2021, 11/JAN/2022, 25/JAN/2022, 08/FEB/2022, 08/MA
     Route: 041
     Dates: start: 20211202, end: 20220308
  2. BEVACIZUMAB [Suspect]
     Active Substance: BEVACIZUMAB
     Indication: Triple negative breast cancer
     Dosage: RECEIVED CONSECUTIVE DOSES ON 16/DEC/2021, 27/DEC/2021, 11/JAN/2022, 25/JAN/2022, 08/FEB/2022, 08/MA
     Route: 042
     Dates: start: 20211202
  3. BEVACIZUMAB [Suspect]
     Active Substance: BEVACIZUMAB
     Dosage: RECEIVED CONSECUTIVE DOSES ON 16/DEC/2021, 27/DEC/2021, 11/JAN/2022, 25/JAN/2022, 08/FEB/2022, 08/MA
     Route: 042
     Dates: start: 20220208
  4. BEVACIZUMAB [Suspect]
     Active Substance: BEVACIZUMAB
     Route: 042
     Dates: start: 20220111
  5. BEVACIZUMAB [Suspect]
     Active Substance: BEVACIZUMAB
     Route: 042
     Dates: start: 20220125
  6. PACLITAXEL [Suspect]
     Active Substance: PACLITAXEL
     Indication: Triple negative breast cancer
     Dosage: THE LAST DOSES OF PACLITAXEL WERE ADMINISTERED ON 08/MAR/2022.
     Route: 042
     Dates: start: 20211202
  7. PACLITAXEL [Suspect]
     Active Substance: PACLITAXEL
     Dosage: THE LAST DOSES OF PACLITAXEL WERE ADMINISTERED ON 08/MAR/2022.
     Route: 042
     Dates: start: 20220308
  8. FENTANYL [Concomitant]
     Active Substance: FENTANYL
     Indication: Tumour pain
     Dosage: 50 UG/H
     Route: 042
     Dates: start: 20220301, end: 20220303
  9. FENTANYL [Concomitant]
     Active Substance: FENTANYL
     Route: 062
     Dates: start: 20220310
  10. FENTANYL [Concomitant]
     Active Substance: FENTANYL
     Indication: Pain
     Route: 062
     Dates: start: 20220301
  11. MOVICOL [Concomitant]
     Active Substance: POLYETHYLENE GLYCOL 3350\POTASSIUM CHLORIDE\SODIUM BICARBONATE\SODIUM CHLORIDE
     Indication: Prophylaxis
     Dosage: 3 BAG
     Route: 048
     Dates: start: 20220301
  12. OXYCODONE [Concomitant]
     Active Substance: OXYCODONE
     Indication: Pain
     Route: 048
     Dates: start: 20211209
  13. OXYCODONE [Concomitant]
     Active Substance: OXYCODONE
     Route: 048
     Dates: start: 20220208
  14. IBUPROFEN [Concomitant]
     Active Substance: IBUPROFEN
     Indication: Tumour pain
     Route: 048
     Dates: start: 20220222
  15. IBUPROFEN [Concomitant]
     Active Substance: IBUPROFEN
     Indication: Pain
     Route: 048
     Dates: start: 20220222
  16. NOVALGIN (METAMIZOLE SODIUM) [Concomitant]
     Active Substance: METAMIZOLE SODIUM
     Indication: Pain
     Route: 048
     Dates: start: 20211126
  17. NOVALGIN (METAMIZOLE SODIUM) [Concomitant]
     Active Substance: METAMIZOLE SODIUM
     Indication: Tumour pain
     Route: 048
     Dates: start: 20220301
  18. NOVALGIN (METAMIZOLE SODIUM) [Concomitant]
     Active Substance: METAMIZOLE SODIUM
     Route: 048
     Dates: start: 20220305
  19. LYRICA [Concomitant]
     Active Substance: PREGABALIN
     Indication: Tumour pain
     Route: 048
     Dates: start: 20220225
  20. PREDNISOLONE [Concomitant]
     Active Substance: PREDNISOLONE
     Route: 042
     Dates: start: 20220201, end: 20220201
  21. ZOMETA [Concomitant]
     Active Substance: ZOLEDRONIC ACID

REACTIONS (3)
  - Mucosal inflammation [Recovered/Resolved]
  - Tumour pain [Recovered/Resolved]
  - Pemphigoid [Recovered/Resolved]

NARRATIVE: CASE EVENT DATE: 20220214
